FAERS Safety Report 17218891 (Version 3)
Quarter: 2021Q2

REPORT INFORMATION
  Report Type: Report from Study
  Country: GB (occurrence: GB)
  Receive Date: 20191231
  Receipt Date: 20210511
  Transmission Date: 20210716
  Serious: Yes (Hospitalization, Other)
  Sender: FDA-Public Use
  Company Number: NVSC2019GB025183

PATIENT
  Sex: Female

DRUGS (2)
  1. HYRIMOZ [Suspect]
     Active Substance: ADALIMUMAB-ADAZ
     Dosage: 1 DF, Q3W (40MG/0.8ML)
     Route: 058
  2. HYRIMOZ [Suspect]
     Active Substance: ADALIMUMAB-ADAZ
     Indication: RHEUMATOID ARTHRITIS
     Dosage: 1 DF, Q2W
     Route: 065
     Dates: start: 20191007

REACTIONS (9)
  - Cough [Not Recovered/Not Resolved]
  - Illness [Unknown]
  - Pulmonary oedema [Unknown]
  - Viral infection [Not Recovered/Not Resolved]
  - Pneumonia [Unknown]
  - Nasopharyngitis [Unknown]
  - Inappropriate schedule of product administration [Unknown]
  - Headache [Not Recovered/Not Resolved]
  - Influenza like illness [Not Recovered/Not Resolved]
